FAERS Safety Report 8534053-6 (Version None)
Quarter: 2012Q3

REPORT INFORMATION
  Report Type: 
  Country: None (occurrence: None)
  Receive Date: 20120724
  Receipt Date: 20120713
  Transmission Date: 20120928
  Serious: Yes (Hospitalization)
  Sender: FDA-Public Use
  Company Number: DE-CELGENEUS-062-21660-12071541

PATIENT
  Age: 71 Year
  Sex: Female
  Weight: 59 kg

DRUGS (5)
  1. DELMUNO [Concomitant]
     Route: 065
  2. ABRAXANE [Suspect]
     Indication: BREAST CANCER
     Dosage: 24 MILLIGRAM
     Route: 041
     Dates: start: 20120507, end: 20120710
  3. CAPECITABINE [Suspect]
     Indication: BREAST CANCER
     Route: 048
     Dates: start: 20120507, end: 20120710
  4. ACETYLSALICYLIC ACID SRT [Concomitant]
     Route: 065
  5. CONCOR PLUS 5 [Concomitant]
     Route: 065

REACTIONS (1)
  - ABDOMINAL PAIN [None]
